FAERS Safety Report 12602999 (Version 1)
Quarter: 2016Q3

REPORT INFORMATION
  Report Type: Spontaneous
  Country: GB (occurrence: GB)
  Receive Date: 20160728
  Receipt Date: 20160728
  Transmission Date: 20161109
  Serious: Yes (Other)
  Sender: FDA-Public Use
  Company Number: GB-PFIZER INC-2016351124

PATIENT
  Age: 39 Year
  Sex: Male

DRUGS (1)
  1. KETAMINE HCL [Suspect]
     Active Substance: KETAMINE HYDROCHLORIDE
     Dosage: UNK

REACTIONS (7)
  - Drug abuse [Unknown]
  - Liver disorder [Unknown]
  - Renal failure [Unknown]
  - Hydronephrosis [Unknown]
  - Ureteric stenosis [Unknown]
  - Cystitis [Unknown]
  - Metaplasia [Unknown]
